FAERS Safety Report 6090064-4 (Version None)
Quarter: 2009Q1

REPORT INFORMATION
  Report Type: 
  Country: None (occurrence: None)
  Receive Date: 20090224
  Receipt Date: 20081203
  Transmission Date: 20090719
  Serious: No
  Sender: FDA-Public Use
  Company Number: US-ABBOTT-08P-163-0491023-00

PATIENT
  Sex: Female

DRUGS (9)
  1. SIMCOR [Suspect]
     Indication: CARDIAC DISORDER
     Dosage: 1-500/20MG PILL DAILY AT BEDTIME
     Route: 048
     Dates: start: 20081117
  2. SIMCOR [Suspect]
     Indication: DIABETES MELLITUS
  3. SIMCOR [Suspect]
     Indication: BLOOD CHOLESTEROL
  4. FUROSEMIDE [Concomitant]
     Indication: SWELLING
     Route: 048
  5. INSULIN [Concomitant]
     Indication: TYPE 2 DIABETES MELLITUS
  6. LOTREL [Concomitant]
     Indication: HYPERTENSION
  7. ATENOLOL [Concomitant]
     Indication: HYPERTENSION
  8. PROZAC [Concomitant]
     Indication: DRUG USE FOR UNKNOWN INDICATION
  9. ASPIRIN [Concomitant]
     Indication: DRUG USE FOR UNKNOWN INDICATION
     Dosage: TAKES DAILY WITH SIMCOR
     Route: 048

REACTIONS (3)
  - DIARRHOEA [None]
  - OEDEMA PERIPHERAL [None]
  - PAIN IN EXTREMITY [None]
